FAERS Safety Report 5239729-4 (Version None)
Quarter: 2007Q1

REPORT INFORMATION
  Report Type: 
  Country: None (occurrence: None)
  Receive Date: 20070216
  Receipt Date: 20070208
  Transmission Date: 20070707
  Serious: Yes (Life-Threatening, Hospitalization)
  Sender: FDA-Public Use
  Company Number: US-JNJFOC-20070202152

PATIENT
  Sex: Female
  Weight: 57.3 kg

DRUGS (2)
  1. YONDELIS [Suspect]
     Indication: OVARIAN CANCER
     Route: 042
  2. DOXIL [Suspect]
     Indication: OVARIAN CANCER
     Route: 042

REACTIONS (3)
  - CARDIAC MURMUR [None]
  - ELECTROCARDIOGRAM CHANGE [None]
  - PALPITATIONS [None]
